FAERS Safety Report 24135272 (Version 3)
Quarter: 2024Q4

REPORT INFORMATION
  Report Type: Spontaneous
  Country: IT (occurrence: IT)
  Receive Date: 20240725
  Receipt Date: 20241122
  Transmission Date: 20250114
  Serious: Yes (Death, Hospitalization, Other)
  Sender: SANOFI AVENTIS
  Company Number: None

PATIENT
  Age: 34 Year
  Sex: Male
  Weight: 85 kg

DRUGS (4)
  1. LEMTRADA [Suspect]
     Active Substance: ALEMTUZUMAB
     Indication: Relapsing multiple sclerosis
     Dosage: 12 MG, QD
     Route: 042
     Dates: start: 20220517, end: 20220521
  2. LEMTRADA [Suspect]
     Active Substance: ALEMTUZUMAB
     Dosage: 12 MG, QD
     Route: 042
     Dates: start: 20230522, end: 20230524
  3. NOREPINEPHRINE [Concomitant]
     Active Substance: NOREPINEPHRINE\NOREPINEPHRINE BITARTRATE
     Dosage: UNK
  4. RITUXIMAB [Concomitant]
     Active Substance: RITUXIMAB
     Dosage: 650 MG IN 500 ML OF NACI 0.9%, GIVEN AS A CONTINUOUS INFUSION FOR 6 HOURS AT A RATE OF 83 ML/HOUR
     Route: 042

REACTIONS (23)
  - Cardiac arrest [Fatal]
  - Bradycardia [Fatal]
  - Pulmonary embolism [Unknown]
  - Acidosis [Unknown]
  - Condition aggravated [Unknown]
  - Coma [Unknown]
  - Hypotension [Unknown]
  - Oxygen saturation decreased [Unknown]
  - Blood lactic acid increased [Unknown]
  - Blood glucose increased [Unknown]
  - Sinus tachycardia [Unknown]
  - Autoimmune haemolytic anaemia [Unknown]
  - Tri-iodothyronine free increased [Unknown]
  - Haemoglobin decreased [Unknown]
  - Blood bilirubin increased [Unknown]
  - Reticulocyte count increased [Unknown]
  - Gastrointestinal disorder [Unknown]
  - Constipation [Unknown]
  - Blood fibrinogen increased [Unknown]
  - Full blood count abnormal [Unknown]
  - Lymphopenia [Unknown]
  - Abdominal pain [Unknown]
  - Asthenia [Unknown]

NARRATIVE: CASE EVENT DATE: 20230101
